FAERS Safety Report 6611863-3 (Version None)
Quarter: 2010Q1

REPORT INFORMATION
  Report Type: 
  Country: None (occurrence: None)
  Receive Date: 20100225
  Receipt Date: 20100216
  Transmission Date: 20100710
  Serious: Yes (Other)
  Sender: FDA-Public Use
  Company Number: A-NJ2010-33463

PATIENT
  Age: 64 Year
  Sex: Female
  Weight: 66.1 kg

DRUGS (14)
  1. TRACLEER [Suspect]
     Indication: PULMONARY ARTERIAL HYPERTENSION
     Dosage: 125 MG, BID, ORAL; 62.5 MG, BID, ORAL
     Route: 048
     Dates: start: 20090411, end: 20090510
  2. TRACLEER [Suspect]
     Indication: PULMONARY ARTERIAL HYPERTENSION
     Dosage: 125 MG, BID, ORAL; 62.5 MG, BID, ORAL
     Route: 048
     Dates: start: 20090511, end: 20091009
  3. MAGNESIUM OXIDE (MAGNESIUM OXIDE) [Concomitant]
  4. HYDROCODONE (HYDROCODONE) [Concomitant]
  5. ENALAPRIL MALEATE [Concomitant]
  6. COUMADIN [Concomitant]
  7. NEXIUM [Concomitant]
  8. LASIX [Concomitant]
  9. POTASSIUM (POTASSIUM) [Concomitant]
  10. MULTIVITAMIN [Concomitant]
  11. DIGOXIN [Concomitant]
  12. CEFTRIAXONE [Concomitant]
  13. TOPROL-XL [Concomitant]
  14. OXYGEN (OXYGEN) [Concomitant]

REACTIONS (6)
  - BLOOD DISORDER [None]
  - CARDIAC PACEMAKER INSERTION [None]
  - FATIGUE [None]
  - INFECTION [None]
  - LIVER FUNCTION TEST ABNORMAL [None]
  - SEPSIS [None]
